FAERS Safety Report 6076252-1 (Version None)
Quarter: 2009Q1

REPORT INFORMATION
  Report Type: 
  Country: None (occurrence: None)
  Receive Date: 20090210
  Receipt Date: 20090202
  Transmission Date: 20090719
  Serious: Yes (Other)
  Sender: FDA-Public Use
  Company Number: 2009SP001941

PATIENT
  Sex: 0

DRUGS (2)
  1. PEGATRON              (PEGINTERFERON ALFA-2B W/RIBAVIRIN) (PEGYLATED I [Suspect]
     Indication: DRUG USE FOR UNKNOWN INDICATION
  2. PEGASYS [Suspect]
     Indication: DRUG USE FOR UNKNOWN INDICATION

REACTIONS (1)
  - SMALL CELL LUNG CANCER STAGE UNSPECIFIED [None]
